FAERS Safety Report 15202203 (Version 14)
Quarter: 2019Q2

REPORT INFORMATION
  Report Type: Spontaneous
  Country: CA (occurrence: CA)
  Receive Date: 20180726
  Receipt Date: 20190627
  Transmission Date: 20190711
  Serious: Yes (Other)
  Sender: FDA-Public Use
  Company Number: CA-PFIZER INC-2018299779

PATIENT
  Age: 38 Year
  Sex: Female

DRUGS (42)
  1. CELEBREX [Suspect]
     Active Substance: CELECOXIB
     Dosage: 200 MILLIGRAM, 1 EVERY 12 HOUR
     Route: 065
  2. HUMIRA [Suspect]
     Active Substance: ADALIMUMAB
     Dosage: 40 MG, UNK (1 EVERY 2 WEEKS)
     Route: 058
  3. REMICADE [Suspect]
     Active Substance: INFLIXIMAB
     Dosage: UNK
     Route: 042
  4. REMICADE [Suspect]
     Active Substance: INFLIXIMAB
     Dosage: UNK
     Route: 065
  5. DICLOFENAC [Concomitant]
     Active Substance: DICLOFENAC
     Dosage: UNK
  6. INDOMETHACIN [INDOMETACIN] [Concomitant]
     Active Substance: INDOMETHACIN
     Dosage: UNK
  7. RIZATRIPTAN. [Concomitant]
     Active Substance: RIZATRIPTAN
     Indication: MIGRAINE
     Dosage: 10 MILLIGRAM, AS NECESSARY
     Route: 065
     Dates: start: 2013
  8. ETANERCEPT [Suspect]
     Active Substance: ETANERCEPT
     Dosage: UNK
     Route: 065
  9. GABAPENTIN. [Suspect]
     Active Substance: GABAPENTIN
     Dosage: 2 DF, 1X/DAY
     Route: 065
  10. CIMZIA [Suspect]
     Active Substance: CERTOLIZUMAB PEGOL
     Dosage: UNK
     Route: 065
  11. SIMPONI [Suspect]
     Active Substance: GOLIMUMAB
     Dosage: UNK
     Route: 058
  12. MELOXICAM. [Concomitant]
     Active Substance: MELOXICAM
     Dosage: UNK
  13. BRENZYS [Concomitant]
     Active Substance: ETANERCEPT
     Dosage: UNK
  14. SULFASALAZINE. [Concomitant]
     Active Substance: SULFASALAZINE
     Dosage: UNK
     Route: 065
     Dates: start: 201012, end: 201101
  15. CELEBREX [Suspect]
     Active Substance: CELECOXIB
     Dosage: 200 MG, 2X/DAY (200 MG 2 EVERY 1 DAY(S))
     Route: 065
  16. HYDROMORPHONE HYDROCHLORIDE. [Suspect]
     Active Substance: HYDROMORPHONE HYDROCHLORIDE
     Indication: BREAKTHROUGH PAIN
     Dosage: 2 MILLIGRAM, AS NECESSARY
     Route: 065
     Dates: start: 2014
  17. HYDROMORPHONE HYDROCHLORIDE. [Suspect]
     Active Substance: HYDROMORPHONE HYDROCHLORIDE
     Dosage: 2 MG, UNK
     Route: 065
  18. CIMZIA [Suspect]
     Active Substance: CERTOLIZUMAB PEGOL
     Dosage: UNK
     Route: 058
  19. HUMIRA [Suspect]
     Active Substance: ADALIMUMAB
     Dosage: 40 MG, UNK
     Route: 058
  20. HUMIRA [Suspect]
     Active Substance: ADALIMUMAB
     Dosage: 1 DF, UNK
     Route: 058
  21. LOLO [Concomitant]
     Active Substance: ETHINYL ESTRADIOL\NORETHINDRONE ACETATE
     Indication: CONTRACEPTION
     Dosage: UNK
     Route: 065
     Dates: start: 201601
  22. RIZATRIPTAN. [Concomitant]
     Active Substance: RIZATRIPTAN
     Dosage: 10 MILLIGRAM
     Route: 065
     Dates: start: 2013
  23. ENBREL [Suspect]
     Active Substance: ETANERCEPT
     Dosage: UNK
     Route: 065
  24. FENTANYL. [Suspect]
     Active Substance: FENTANYL
     Dosage: 1 DF, UNK
     Route: 065
  25. FENTANYL. [Suspect]
     Active Substance: FENTANYL
     Dosage: 37 MG, 1X/DAY
     Route: 065
  26. GABAPENTIN. [Suspect]
     Active Substance: GABAPENTIN
     Dosage: 600 MG, 2X/DAY (600 MG 2 EVERY 1 DAY(S))
     Route: 065
     Dates: start: 201610
  27. LOLO [Concomitant]
     Active Substance: ETHINYL ESTRADIOL\NORETHINDRONE ACETATE
     Dosage: UNK
  28. INFLECTRA [Concomitant]
     Active Substance: INFLIXIMAB-DYYB
     Indication: ANKYLOSING SPONDYLITIS
     Dosage: UNK
     Route: 042
  29. FENTANYL. [Suspect]
     Active Substance: FENTANYL
     Dosage: 37 MICROGRAM, BID
     Route: 065
     Dates: start: 201610
  30. FENTANYL. [Suspect]
     Active Substance: FENTANYL
     Dosage: 37 MG, ALTERNATE DAY (1 EVERY 2 DAY(S))
     Route: 065
  31. GABAPENTIN. [Suspect]
     Active Substance: GABAPENTIN
     Dosage: UNK, 1X/DAY
     Route: 065
  32. COSENTYX [Suspect]
     Active Substance: SECUKINUMAB
     Dosage: UNK
     Route: 065
  33. GABAPENTIN. [Suspect]
     Active Substance: GABAPENTIN
     Dosage: 600 MILLIGRAM, 1 EVERY 12 HOURS
     Route: 065
     Dates: start: 201610
  34. METHOTREXATE SODIUM. [Suspect]
     Active Substance: METHOTREXATE SODIUM
     Dosage: UNK
     Route: 065
     Dates: start: 201506, end: 201607
  35. ARAVA [Suspect]
     Active Substance: LEFLUNOMIDE
     Dosage: 1 DF, 1X/DAY (1 EVERY 1 DAY(S))
     Route: 065
  36. HUMIRA [Suspect]
     Active Substance: ADALIMUMAB
     Dosage: 40 MILLIGRAM
     Route: 065
  37. PROPRANOLOL [Concomitant]
     Active Substance: PROPRANOLOL HYDROCHLORIDE
     Indication: MIGRAINE
     Dosage: 20 MILLIGRAM, BID
     Route: 065
     Dates: start: 2013
  38. CELEBREX [Suspect]
     Active Substance: CELECOXIB
     Dosage: 2 DF, 1X/DAY (1 EVERY 1 DAY(S))
     Route: 065
  39. FENTANYL. [Suspect]
     Active Substance: FENTANYL
     Dosage: 37 MILLIGRAM, BID
  40. ARAVA [Suspect]
     Active Substance: LEFLUNOMIDE
     Dosage: 20 MG, 1X/DAY (20 MG 1 EVERY 24 HOUR(S))
     Route: 048
     Dates: start: 20170930
  41. SIMPONI [Suspect]
     Active Substance: GOLIMUMAB
     Dosage: UNK
     Route: 058
  42. SIMPONI [Suspect]
     Active Substance: GOLIMUMAB
     Dosage: UNK
     Route: 058

REACTIONS (10)
  - Drug ineffective [Unknown]
  - Vomiting [Unknown]
  - Gait inability [Unknown]
  - Nausea [Unknown]
  - Ankylosing spondylitis [Unknown]
  - Hypermobility syndrome [Unknown]
  - Anaphylactic reaction [Unknown]
  - Condition aggravated [Unknown]
  - Migraine [Unknown]
  - Vertigo [Unknown]
